FAERS Safety Report 9776345 (Version 1)
Quarter: 2013Q4

REPORT INFORMATION
  Report Type: Spontaneous
  Country: US (occurrence: US)
  Receive Date: 20131220
  Receipt Date: 20131220
  Transmission Date: 20140711
  Serious: Yes (Other)
  Sender: FDA-Public Use
  Company Number: PHHY2013US148320

PATIENT
  Age: 51 Year
  Sex: Female

DRUGS (5)
  1. DOXORUBICIN [Suspect]
     Indication: INVASIVE DUCTAL BREAST CARCINOMA
  2. PACLITAXEL [Suspect]
     Indication: INVASIVE DUCTAL BREAST CARCINOMA
     Dosage: 80 MG/M2, WEEKLY
  3. CYCLOPHOSPHAMIDE [Suspect]
     Indication: INVASIVE DUCTAL BREAST CARCINOMA
  4. WINTHROP [Suspect]
     Indication: INVASIVE DUCTAL BREAST CARCINOMA
     Dosage: 100 MG/M2, UNK
  5. PEGFILGRASTIM [Concomitant]

REACTIONS (6)
  - Palmar-plantar erythrodysaesthesia syndrome [Recovering/Resolving]
  - Pain [Recovering/Resolving]
  - Local swelling [Recovering/Resolving]
  - Erythema [Recovering/Resolving]
  - Neuropathy peripheral [Recovering/Resolving]
  - Mucosal inflammation [Recovered/Resolved]
